FAERS Safety Report 9700403 (Version 2)
Quarter: 2014Q1

REPORT INFORMATION
  Report Type: Spontaneous
  Country: JP (occurrence: None)
  Receive Date: 20131119
  Receipt Date: 20140123
  Transmission Date: 20141002
  Serious: Yes (Life-Threatening, Hospitalization)
  Sender: FDA-Public Use
  Company Number: ABR_00983_2013

PATIENT
  Age: 62 Year
  Sex: Male
  Weight: 72 kg

DRUGS (3)
  1. GLIADEL [Suspect]
     Indication: MALIGNANT GLIOMA
     Dosage: 53.9 MG INTRACEREBRAL)
     Dates: start: 20130515, end: 20130515
  2. ALEVIATIN [Concomitant]
  3. RINDERON [Concomitant]

REACTIONS (2)
  - Brain oedema [None]
  - Altered state of consciousness [None]
